FAERS Safety Report 4323694-8 (Version None)
Quarter: 2004Q1

REPORT INFORMATION
  Report Type: 
  Country: None (occurrence: None)
  Receive Date: 20040323
  Receipt Date: 20040315
  Transmission Date: 20041129
  Serious: Yes (Life-Threatening)
  Sender: FDA-Public Use
  Company Number: 2004AP01672

PATIENT
  Age: 27 Year
  Sex: Male

DRUGS (4)
  1. OMEPRAZOLE [Suspect]
     Indication: GASTRIC ULCER
     Dosage: 20 MG DAILY PO
     Route: 048
     Dates: start: 20040201, end: 20040301
  2. ALLOID [Concomitant]
  3. MALFA [Concomitant]
  4. MYONAL [Concomitant]

REACTIONS (2)
  - DIALYSIS [None]
  - HYPERKALAEMIA [None]
